FAERS Safety Report 20164963 (Version 1)
Quarter: 2021Q4

REPORT INFORMATION
  Report Type: Spontaneous
  Country: CN (occurrence: CN)
  Receive Date: 20211209
  Receipt Date: 20211209
  Transmission Date: 20220303
  Serious: Yes (Other)
  Sender: FDA-Public Use
  Company Number: CN-009507513-2112CHN001253

PATIENT
  Age: 56 Year
  Sex: Male

DRUGS (13)
  1. CASPOFUNGIN ACETATE [Suspect]
     Active Substance: CASPOFUNGIN ACETATE
     Indication: Bronchopulmonary aspergillosis
     Dosage: 70 MG Q24H
     Dates: start: 20210207, end: 20210207
  2. CASPOFUNGIN ACETATE [Suspect]
     Active Substance: CASPOFUNGIN ACETATE
     Indication: Antifungal treatment
     Dosage: 50 MG Q24H
     Dates: start: 20210208
  3. VORICONAZOLE [Suspect]
     Active Substance: VORICONAZOLE
     Indication: Bronchopulmonary aspergillosis
     Dosage: 0.4 GRAM, Q12H
     Dates: start: 20210130, end: 20210130
  4. VORICONAZOLE [Suspect]
     Active Substance: VORICONAZOLE
     Dosage: 0.2 GRAM, Q12H
     Dates: start: 20210131
  5. GLYBURIDE [Concomitant]
     Active Substance: GLYBURIDE
     Indication: Type 2 diabetes mellitus
     Dosage: 1.25MG BEFORE BREAKFAST AND 2.50MG BEFORE LUNCH
     Route: 048
     Dates: end: 20210130
  6. PIPERACILLIN SODIUM\SULBACTAM SODIUM [Concomitant]
     Active Substance: PIPERACILLIN SODIUM\SULBACTAM SODIUM
     Indication: Anti-infective therapy
     Dosage: 4.5 GRAM, Q12H
     Dates: start: 20210125, end: 20210127
  7. LEVOFLOXACIN [Concomitant]
     Active Substance: LEVOFLOXACIN
     Indication: Anti-infective therapy
     Dosage: 0.4 GRAM, Q12H
     Route: 041
     Dates: start: 20210125, end: 20210127
  8. LEVOFLOXACIN [Concomitant]
     Active Substance: LEVOFLOXACIN
     Dosage: 0.5 GRAM, Q12H
     Dates: start: 20210128
  9. AMBROXOL HYDROCHLORIDE [Concomitant]
     Active Substance: AMBROXOL HYDROCHLORIDE
     Indication: Productive cough
     Dosage: UNK
     Dates: start: 20210125
  10. DOXOFYLLINE [Concomitant]
     Active Substance: DOXOFYLLINE
     Indication: Asthma
     Dosage: UNK
     Dates: start: 20210125
  11. BIAPENEM [Concomitant]
     Active Substance: BIAPENEM
     Indication: Anti-infective therapy
     Dosage: 0.3 GRAM, Q8H
     Dates: start: 20210128
  12. IMIPENEM AND CILASTATIN [Concomitant]
     Active Substance: CILASTATIN SODIUM\IMIPENEM
     Indication: Infection
     Dosage: 0.5 GRAM, Q8H
     Dates: start: 20210130
  13. ACARBOSE [Concomitant]
     Active Substance: ACARBOSE
     Indication: Type 2 diabetes mellitus
     Dosage: 50 MILLIGRAM, Q8H
     Dates: start: 20210130

REACTIONS (1)
  - Liver injury [Recovering/Resolving]

NARRATIVE: CASE EVENT DATE: 20210209
